FAERS Safety Report 25101360 (Version 1)
Quarter: 2025Q1

REPORT INFORMATION
  Report Type: Spontaneous
  Country: US (occurrence: US)
  Receive Date: 20250320
  Receipt Date: 20250320
  Transmission Date: 20250409
  Serious: Yes (Death, Other)
  Sender: AMGEN
  Company Number: US-AMGEN-USASP2025050956

PATIENT

DRUGS (9)
  1. CARFILZOMIB [Suspect]
     Active Substance: CARFILZOMIB
     Indication: Plasma cell myeloma refractory
     Route: 065
  2. FILGRASTIM [Suspect]
     Active Substance: FILGRASTIM
     Indication: Product used for unknown indication
     Route: 065
  3. DARATUMUMAB [Suspect]
     Active Substance: DARATUMUMAB
     Indication: Plasma cell myeloma refractory
     Route: 065
  4. MODAKAFUSP ALFA [Concomitant]
     Active Substance: MODAKAFUSP ALFA
     Dosage: UNK UNK, QWK
     Route: 040
  5. DIPHENHYDRAMINE [Concomitant]
     Active Substance: DIPHENHYDRAMINE
     Route: 065
  6. ACETAMINOPHEN [Concomitant]
     Active Substance: ACETAMINOPHEN
  7. BORTEZOMIB [Concomitant]
     Active Substance: BORTEZOMIB
     Indication: Plasma cell myeloma refractory
     Route: 065
  8. LENALIDOMIDE [Concomitant]
     Active Substance: LENALIDOMIDE
     Indication: Plasma cell myeloma refractory
  9. POMALIDOMIDE [Concomitant]
     Active Substance: POMALIDOMIDE
     Indication: Plasma cell myeloma refractory

REACTIONS (36)
  - Death [Fatal]
  - Thrombocytopenia [Unknown]
  - Neutropenia [Unknown]
  - Leukopenia [Unknown]
  - Anaemia [Unknown]
  - Lymphopenia [Unknown]
  - Hyperglycaemia [Unknown]
  - Fatigue [Unknown]
  - Back pain [Unknown]
  - Hypocalcaemia [Unknown]
  - Infusion related reaction [Unknown]
  - Hypoalbuminaemia [Unknown]
  - Hyponatraemia [Unknown]
  - Aspartate aminotransferase increased [Unknown]
  - Dyspnoea [Unknown]
  - Headache [Unknown]
  - Hypophosphataemia [Unknown]
  - Pyrexia [Unknown]
  - Pneumonia [Unknown]
  - Pruritus [Unknown]
  - Hypertension [Unknown]
  - Plasma cell myeloma [Unknown]
  - Encephalopathy [Unknown]
  - Infection [Unknown]
  - Sinusitis [Unknown]
  - Hyperuricaemia [Unknown]
  - Therapy partial responder [Unknown]
  - Epistaxis [Unknown]
  - Chills [Unknown]
  - Therapy non-responder [Unknown]
  - Haemorrhage [Unknown]
  - Diarrhoea [Unknown]
  - Tachycardia [Unknown]
  - Nausea [Unknown]
  - Cough [Unknown]
  - Wheezing [Unknown]
